FAERS Safety Report 8364390-X (Version None)
Quarter: 2012Q2

REPORT INFORMATION
  Report Type: 
  Country: None (occurrence: None)
  Receive Date: 20120516
  Receipt Date: 20120515
  Transmission Date: 20120825
  Serious: Yes (Life-Threatening, Hospitalization, Other)
  Sender: FDA-Public Use
  Company Number: DK-ABBOTT-12P-044-0900881-00

PATIENT
  Sex: Male

DRUGS (2)
  1. HUMIRA [Suspect]
     Indication: SPONDYLITIS
     Route: 058
     Dates: start: 20100212, end: 20111219
  2. HYPERIKUM [Concomitant]
     Indication: PRODUCT USED FOR UNKNOWN INDICATION

REACTIONS (6)
  - ENCEPHALITIS ALLERGIC [None]
  - CONVULSION [None]
  - PLEOCYTOSIS [None]
  - HALLUCINATION, VISUAL [None]
  - CONFUSIONAL STATE [None]
  - LEUKOENCEPHALOPATHY [None]
